FAERS Safety Report 4837243-9 (Version None)
Quarter: 2005Q4

REPORT INFORMATION
  Report Type: 
  Country: None (occurrence: None)
  Receive Date: 20051122
  Receipt Date: 20051109
  Transmission Date: 20060501
  Serious: Yes (Other)
  Sender: FDA-Public Use
  Company Number: 219358

PATIENT
  Age: 52 Year
  Sex: Female
  Weight: 81.0124 kg

DRUGS (1)
  1. XOLAIR [Suspect]
     Indication: ASTHMA
     Dosage: 150 MG SUBCUTANEOUS
     Route: 058

REACTIONS (2)
  - ANAPHYLACTIC REACTION [None]
  - HEADACHE [None]
